FAERS Safety Report 11364554 (Version 1)
Quarter: 2015Q3

REPORT INFORMATION
  Report Type: Spontaneous
  Country: US (occurrence: None)
  Receive Date: 20150810
  Receipt Date: 20150810
  Transmission Date: 20151125
  Serious: Yes (Life-Threatening, Hospitalization)
  Sender: FDA-Public Use
  Company Number: None

PATIENT
  Age: 63 Year
  Sex: Female
  Weight: 78.02 kg

DRUGS (1)
  1. LOSARTAN 25 MG WATSON PHARMACEUTICALS [Suspect]
     Active Substance: LOSARTAN
     Indication: BLOOD PRESSURE MEASUREMENT
     Route: 048
     Dates: end: 20150606

REACTIONS (2)
  - Blood glucose increased [None]
  - Heart rate increased [None]

NARRATIVE: CASE EVENT DATE: 20150627
